FAERS Safety Report 13759125 (Version 1)
Quarter: 2017Q3

REPORT INFORMATION
  Report Type: Spontaneous
  Country: US (occurrence: US)
  Receive Date: 20170717
  Receipt Date: 20170717
  Transmission Date: 20171127
  Serious: Yes (Other)
  Sender: FDA-Public Use
  Company Number: US-MYLANLABS-2017M1040245

PATIENT

DRUGS (2)
  1. VANCOMYCIN [Suspect]
     Active Substance: VANCOMYCIN
     Indication: ENDOCARDITIS
     Dosage: 2 COURSES
     Route: 065
  2. NAFCILLIN [Concomitant]
     Active Substance: NAFCILLIN\NAFCILLIN SODIUM
     Indication: ENDOCARDITIS
     Route: 065

REACTIONS (5)
  - Pruritus [Unknown]
  - Hypersensitivity [Unknown]
  - Wheezing [Unknown]
  - Red man syndrome [Unknown]
  - Rash erythematous [Unknown]
